FAERS Safety Report 15957443 (Version 1)
Quarter: 2019Q1

REPORT INFORMATION
  Report Type: Spontaneous
  Country: AU (occurrence: AU)
  Receive Date: 20190213
  Receipt Date: 20190213
  Transmission Date: 20190417
  Serious: Yes (Other)
  Sender: FDA-Public Use
  Company Number: AU-PFIZER INC-2019056559

PATIENT
  Age: 88 Year
  Sex: Female

DRUGS (1)
  1. PRISTIQ EXTENDED-RELEASE [Suspect]
     Active Substance: DESVENLAFAXINE SUCCINATE
     Dosage: 50 MG

REACTIONS (6)
  - Constipation [Unknown]
  - Haematochezia [Unknown]
  - Vascular rupture [Unknown]
  - Withdrawal syndrome [Unknown]
  - Varicose vein [Unknown]
  - Product dose omission [Unknown]
